FAERS Safety Report 7791635-7 (Version None)
Quarter: 2011Q4

REPORT INFORMATION
  Report Type: 
  Country: None (occurrence: None)
  Receive Date: 20111003
  Receipt Date: 20110919
  Transmission Date: 20120403
  Serious: Yes (Other)
  Sender: FDA-Public Use
  Company Number: IL-ELI_LILLY_AND_COMPANY-IL201109004895

PATIENT
  Sex: Female

DRUGS (3)
  1. FORTEO [Suspect]
     Dosage: 20 UG, QD
     Route: 058
  2. FORTEO [Suspect]
     Indication: OSTEOPOROSIS
     Dosage: 20 UG, QD
     Route: 058
     Dates: start: 20101129
  3. VITAMIN D [Concomitant]
     Dosage: 2000 MG, UNK

REACTIONS (3)
  - LOWER LIMB FRACTURE [None]
  - HEADACHE [None]
  - ABDOMINAL PAIN UPPER [None]
